FAERS Safety Report 8079096-4 (Version None)
Quarter: 2012Q1

REPORT INFORMATION
  Report Type: 
  Country: None (occurrence: None)
  Receive Date: 20120128
  Receipt Date: 20110818
  Transmission Date: 20120608
  Serious: No
  Sender: FDA-Public Use
  Company Number: US-ABBOTT-11P-163-0847796-00

PATIENT
  Age: 25 Year
  Sex: Female

DRUGS (2)
  1. LEFLUNOMIDE [Concomitant]
     Indication: RHEUMATOID ARTHRITIS
     Route: 048
  2. HUMIRA [Suspect]
     Indication: RHEUMATOID ARTHRITIS
     Dates: start: 20110501

REACTIONS (8)
  - SENSATION OF FOREIGN BODY [None]
  - DRY THROAT [None]
  - INJECTION SITE URTICARIA [None]
  - DYSPNOEA [None]
  - RESPIRATORY RATE INCREASED [None]
  - HYPOPNOEA [None]
  - UPPER RESPIRATORY TRACT CONGESTION [None]
  - NASOPHARYNGITIS [None]
